FAERS Safety Report 12509629 (Version 6)
Quarter: 2016Q3

REPORT INFORMATION
  Report Type: Report from Study
  Country: DE (occurrence: DE)
  Receive Date: 20160629
  Receipt Date: 20160906
  Transmission Date: 20161109
  Serious: Yes (Life-Threatening, Hospitalization, Other)
  Sender: FDA-Public Use
  Company Number: DE-B.I. PHARMACEUTICALS,INC./RIDGEFIELD-2014-BI-51688DE

PATIENT
  Age: 56 Year
  Sex: Female
  Weight: 61 kg

DRUGS (2)
  1. GILOTRIF [Suspect]
     Active Substance: AFATINIB
     Dosage: 30 MG
     Route: 048
     Dates: start: 20160304
  2. GILOTRIF [Suspect]
     Active Substance: AFATINIB
     Indication: NON-SMALL CELL LUNG CANCER
     Dosage: 40 MG
     Route: 048
     Dates: start: 20141006

REACTIONS (7)
  - Dermatitis acneiform [Recovered/Resolved]
  - Alopecia [Recovered/Resolved with Sequelae]
  - Dermatitis acneiform [Recovered/Resolved with Sequelae]
  - Vitreous haemorrhage [Recovered/Resolved]
  - Dermatitis exfoliative generalised [Recovered/Resolved with Sequelae]
  - Diarrhoea [Recovered/Resolved]
  - Eyelid function disorder [Unknown]

NARRATIVE: CASE EVENT DATE: 20141007
